FAERS Safety Report 12632848 (Version 2)
Quarter: 2016Q3

REPORT INFORMATION
  Report Type: Spontaneous
  Country: US (occurrence: US)
  Receive Date: 20160808
  Receipt Date: 20160808
  Transmission Date: 20161109
  Serious: No
  Sender: FDA-Public Use
  Company Number: US-BEH-2015057259

PATIENT
  Age: 68 Year
  Sex: Female
  Weight: 83 kg

DRUGS (34)
  1. ZITHROMAX [Concomitant]
     Active Substance: AZITHROMYCIN DIHYDRATE
  2. VITAMIN A [Concomitant]
     Active Substance: VITAMIN A
  3. CYANOCOBALAMIN. [Concomitant]
     Active Substance: CYANOCOBALAMIN
  4. COUGH SYRUP [Concomitant]
     Active Substance: DEXTROMETHORPHAN HYDROBROMIDE\GUAIFENESIN
  5. LIDOCAINE. [Concomitant]
     Active Substance: LIDOCAINE
  6. DETROL LA [Concomitant]
     Active Substance: TOLTERODINE TARTRATE
  7. GINKOBA [Concomitant]
     Active Substance: GINKGO
  8. GRAPE SEED [Concomitant]
  9. MAXALT [Concomitant]
     Active Substance: RIZATRIPTAN BENZOATE
  10. DIPHENHYDRAMINE. [Concomitant]
     Active Substance: DIPHENHYDRAMINE
  11. LIDOCAINE/PRILOCAINE [Concomitant]
     Active Substance: LIDOCAINE\PRILOCAINE
  12. LEVAQUIN [Concomitant]
     Active Substance: LEVOFLOXACIN
  13. FIRST-TESTOSTERONE MC [Concomitant]
  14. POMEGRANATE-EGCG [Concomitant]
  15. CRANBERRY. [Concomitant]
     Active Substance: CRANBERRY
  16. OMEPRAZOLE. [Concomitant]
     Active Substance: OMEPRAZOLE
  17. ADULT ASPIRIN [Concomitant]
  18. DILTIAZEM. [Concomitant]
     Active Substance: DILTIAZEM
  19. SELENIUM [Concomitant]
     Active Substance: SELENIUM
  20. MECLIZINE [Concomitant]
     Active Substance: MECLIZINE HYDROCHLORIDE
  21. ACYCLOVIR. [Concomitant]
     Active Substance: ACYCLOVIR
  22. OXYCODONE [Concomitant]
     Active Substance: OXYCODONE
  23. HIZENTRA [Suspect]
     Active Substance: HUMAN IMMUNOGLOBULIN G
     Indication: IMMUNODEFICIENCY COMMON VARIABLE
     Route: 058
  24. ESTROGEN-METHYLTESTOS F.S. [Concomitant]
  25. SIMVASTATIN. [Concomitant]
     Active Substance: SIMVASTATIN
  26. MULTIVITAMIN [Concomitant]
     Active Substance: VITAMINS
  27. EPIPEN [Concomitant]
     Active Substance: EPINEPHRINE
  28. LYRICA [Concomitant]
     Active Substance: PREGABALIN
  29. ACETAMINOPHEN. [Concomitant]
     Active Substance: ACETAMINOPHEN
  30. PREDNISONE. [Concomitant]
     Active Substance: PREDNISONE
  31. TRAZODONE [Concomitant]
     Active Substance: TRAZODONE HYDROCHLORIDE
  32. MEDROXYPROGESTERONE [Concomitant]
     Active Substance: MEDROXYPROGESTERONE
  33. OPANA ER [Concomitant]
     Active Substance: OXYMORPHONE HYDROCHLORIDE
  34. IRON [Concomitant]
     Active Substance: IRON

REACTIONS (2)
  - Sinusitis [Unknown]
  - Bronchitis [Unknown]

NARRATIVE: CASE EVENT DATE: 201510
